FAERS Safety Report 12693017 (Version 1)
Quarter: 2016Q3

REPORT INFORMATION
  Report Type: Spontaneous
  Country: US (occurrence: None)
  Receive Date: 20160826
  Receipt Date: 20160826
  Transmission Date: 20161109
  Serious: Yes (Other)
  Sender: FDA-Public Use
  Company Number: None

PATIENT
  Age: 71 Year
  Sex: Female
  Weight: 84.37 kg

DRUGS (9)
  1. NORVASC [Concomitant]
     Active Substance: AMLODIPINE BESYLATE
  2. MAGNESIUM [Concomitant]
     Active Substance: MAGNESIUM
  3. LEVOFLOXACIN 500MG [Suspect]
     Active Substance: LEVOFLOXACIN
     Indication: BRONCHITIS
     Route: 048
     Dates: start: 20160719, end: 20160726
  4. XANAX [Concomitant]
     Active Substance: ALPRAZOLAM
  5. VITAMIN C [Concomitant]
     Active Substance: ASCORBIC ACID
  6. TUMS [Concomitant]
     Active Substance: CALCIUM CARBONATE
  7. TOPROL XL [Concomitant]
     Active Substance: METOPROLOL SUCCINATE
  8. STOOL SOFTNER [Concomitant]
     Active Substance: DOCUSATE SODIUM
  9. VITAMIN D3 [Concomitant]
     Active Substance: CHOLECALCIFEROL

REACTIONS (6)
  - Gastrooesophageal reflux disease [None]
  - Joint range of motion decreased [None]
  - Muscle tightness [None]
  - Tendon disorder [None]
  - Neck pain [None]
  - Muscle contractions involuntary [None]

NARRATIVE: CASE EVENT DATE: 20160713
